FAERS Safety Report 10727215 (Version 6)
Quarter: 2015Q2

REPORT INFORMATION
  Report Type: Spontaneous
  Country: US (occurrence: US)
  Receive Date: 20150121
  Receipt Date: 20150623
  Transmission Date: 20150821
  Serious: Yes (Hospitalization, Disabling, Other)
  Sender: FDA-Public Use
  Company Number: US-009507513-1106USA01818

PATIENT
  Sex: Female
  Weight: 47.62 kg

DRUGS (3)
  1. FOSAMAX [Suspect]
     Active Substance: ALENDRONATE SODIUM
     Dosage: 10 MG, QD
     Route: 048
     Dates: end: 20010725
  2. ALENDRONATE SODIUM. [Suspect]
     Active Substance: ALENDRONATE SODIUM
     Indication: BONE DENSITY DECREASED
     Dosage: 70 MG, UNK
     Route: 048
     Dates: start: 20080909, end: 2010
  3. FOSAMAX [Suspect]
     Active Substance: ALENDRONATE SODIUM
     Indication: OSTEOPOROSIS
     Dosage: 70 MG, QW
     Route: 048
     Dates: start: 20010725, end: 201005

REACTIONS (41)
  - Fracture nonunion [Recovered/Resolved]
  - Osteoarthritis [Unknown]
  - Knee operation [Unknown]
  - Haemoglobin decreased [Unknown]
  - Urinary incontinence [Unknown]
  - Radius fracture [Unknown]
  - Back pain [Unknown]
  - Kyphosis [Unknown]
  - Cardiomegaly [Unknown]
  - Dizziness [Unknown]
  - Muscle spasms [Unknown]
  - Open reduction of fracture [Unknown]
  - Osteopenia [Unknown]
  - Skin abrasion [Unknown]
  - Depression [Unknown]
  - Genital discharge [Unknown]
  - Muscle spasms [Unknown]
  - Cystopexy [Unknown]
  - Spinal fusion surgery [Unknown]
  - Femur fracture [Not Recovered/Not Resolved]
  - Tremor [Unknown]
  - Hypoaesthesia [Unknown]
  - Hypothyroidism [Unknown]
  - Weight increased [Unknown]
  - Rib fracture [Unknown]
  - Constipation [Unknown]
  - Adverse event [Unknown]
  - Limb deformity [Unknown]
  - Hypertension [Unknown]
  - Fall [Unknown]
  - Dyspnoea [Unknown]
  - Scoliosis [Unknown]
  - Bone disorder [Not Recovered/Not Resolved]
  - Surgery [Unknown]
  - Contusion [Unknown]
  - Parkinson^s disease [Unknown]
  - Dyspnoea exertional [Unknown]
  - Intramedullary rod insertion [Unknown]
  - Fall [Unknown]
  - Vitamin D deficiency [Unknown]
  - Restless legs syndrome [Unknown]

NARRATIVE: CASE EVENT DATE: 20010725
